FAERS Safety Report 14227944 (Version 1)
Quarter: 2017Q4

REPORT INFORMATION
  Report Type: Spontaneous
  Country: CA (occurrence: CA)
  Receive Date: 20171127
  Receipt Date: 20171127
  Transmission Date: 20180321
  Serious: Yes (Other)
  Sender: FDA-Public Use
  Company Number: CA-SA-2017SA232989

PATIENT
  Sex: Male

DRUGS (11)
  1. ENBREL [Suspect]
     Active Substance: ETANERCEPT
     Indication: RHEUMATOID ARTHRITIS
     Route: 058
     Dates: start: 2008, end: 2009
  2. ASPIRIN. [Concomitant]
     Active Substance: ASPIRIN
     Route: 065
     Dates: start: 2002
  3. PLAQUENIL [Concomitant]
     Active Substance: HYDROXYCHLOROQUINE SULFATE
  4. TIAPROFENIC ACID [Concomitant]
     Active Substance: TIAPROFENIC ACID
  5. ACTEMRA [Suspect]
     Active Substance: TOCILIZUMAB
     Route: 065
  6. SODIUM AUROTHIOMALATE [Suspect]
     Active Substance: GOLD SODIUM THIOMALATE
     Route: 065
  7. ORENCIA [Suspect]
     Active Substance: ABATACEPT
     Route: 065
     Dates: start: 2010, end: 2013
  8. ARAVA [Suspect]
     Active Substance: LEFLUNOMIDE
     Route: 065
  9. SULFASALAZINE. [Suspect]
     Active Substance: SULFASALAZINE
     Route: 065
  10. IMURAN [Suspect]
     Active Substance: AZATHIOPRINE
     Route: 065
  11. METHOTREXATE. [Suspect]
     Active Substance: METHOTREXATE
     Route: 065
     Dates: start: 201709, end: 201709

REACTIONS (12)
  - Back pain [Unknown]
  - Gait inability [Unknown]
  - Drug effect decreased [Unknown]
  - Liver disorder [Unknown]
  - Insomnia [Unknown]
  - Rheumatoid arthritis [Unknown]
  - Limb discomfort [Unknown]
  - Pain in extremity [Unknown]
  - Localised infection [Recovered/Resolved]
  - Shoulder operation [Unknown]
  - Musculoskeletal discomfort [Unknown]
  - Hand deformity [Unknown]
